FAERS Safety Report 10614141 (Version 2)
Quarter: 2015Q1

REPORT INFORMATION
  Report Type: Spontaneous
  Country: US (occurrence: US)
  Receive Date: 20141128
  Receipt Date: 20150204
  Transmission Date: 20150720
  Serious: Yes (Hospitalization, Other)
  Sender: FDA-Public Use
  Company Number: US-ASTRAZENECA-2014SE89910

PATIENT
  Age: 56 Year
  Sex: Female
  Weight: 115.7 kg

DRUGS (11)
  1. CRESTOR [Suspect]
     Active Substance: ROSUVASTATIN CALCIUM
     Indication: LIPIDS INCREASED
     Route: 048
  2. METOPROLOL [Concomitant]
     Active Substance: METOPROLOL
  3. CRESTOR [Suspect]
     Active Substance: ROSUVASTATIN CALCIUM
     Indication: LIPIDS INCREASED
     Route: 048
     Dates: end: 2013
  4. ADVAIR-PROAIR [Concomitant]
  5. FUROSEMIDE. [Concomitant]
     Active Substance: FUROSEMIDE
  6. VALSARTAN. [Concomitant]
     Active Substance: VALSARTAN
  7. NOVOLOG [Concomitant]
     Active Substance: INSULIN ASPART
     Dosage: 20-30
  8. NORCO [Concomitant]
     Active Substance: ACETAMINOPHEN\HYDROCODONE BITARTRATE
  9. HYDRALCLIZIDE [Concomitant]
  10. NORVASC [Concomitant]
     Active Substance: AMLODIPINE BESYLATE
  11. XANAX [Concomitant]
     Active Substance: ALPRAZOLAM

REACTIONS (4)
  - Blood creatine increased [Recovered/Resolved]
  - Rhabdomyolysis [Recovered/Resolved]
  - Acute kidney injury [Recovered/Resolved]
  - Vomiting [Recovered/Resolved]

NARRATIVE: CASE EVENT DATE: 2013
